FAERS Safety Report 20682475 (Version 1)
Quarter: 2022Q2

REPORT INFORMATION
  Report Type: Other
  Country: IL (occurrence: None)
  Receive Date: 20220407
  Receipt Date: 20220407
  Transmission Date: 20220721
  Serious: Yes (Hospitalization)
  Sender: FDA-Public Use
  Company Number: IL-ROCHE-2965481

PATIENT
  Age: 46 Year
  Sex: Male

DRUGS (1)
  1. OCREVUS [Suspect]
     Active Substance: OCRELIZUMAB
     Indication: Relapsing-remitting multiple sclerosis
     Dosage: 300MG FIRST TREATMENT
     Route: 042
     Dates: start: 20211123

REACTIONS (3)
  - Infusion related reaction [Recovered/Resolved]
  - Asthenia [Not Recovered/Not Resolved]
  - Tremor [Recovered/Resolved]

NARRATIVE: CASE EVENT DATE: 20211123
